FAERS Safety Report 25735539 (Version 1)
Quarter: 2025Q3

REPORT INFORMATION
  Report Type: Spontaneous
  Country: US (occurrence: US)
  Receive Date: 20250828
  Receipt Date: 20250828
  Transmission Date: 20251020
  Serious: Yes (Hospitalization)
  Sender: MYLAN
  Company Number: US-MYLANLABS-2025M1072769

PATIENT
  Age: 4 Year
  Sex: Male

DRUGS (64)
  1. DEXAMETHASONE [Suspect]
     Active Substance: DEXAMETHASONE
     Indication: Non-Hodgkin^s lymphoma
  2. DEXAMETHASONE [Suspect]
     Active Substance: DEXAMETHASONE
  3. DEXAMETHASONE [Suspect]
     Active Substance: DEXAMETHASONE
     Route: 048
  4. DEXAMETHASONE [Suspect]
     Active Substance: DEXAMETHASONE
     Route: 048
  5. DEXAMETHASONE [Suspect]
     Active Substance: DEXAMETHASONE
  6. DEXAMETHASONE [Suspect]
     Active Substance: DEXAMETHASONE
  7. DEXAMETHASONE [Suspect]
     Active Substance: DEXAMETHASONE
     Route: 048
  8. DEXAMETHASONE [Suspect]
     Active Substance: DEXAMETHASONE
     Route: 048
  9. MERCAPTOPURINE [Suspect]
     Active Substance: MERCAPTOPURINE
     Indication: Non-Hodgkin^s lymphoma
     Dosage: UNK, QD
  10. MERCAPTOPURINE [Suspect]
     Active Substance: MERCAPTOPURINE
     Dosage: UNK, QD
  11. MERCAPTOPURINE [Suspect]
     Active Substance: MERCAPTOPURINE
     Dosage: UNK, QD
     Route: 048
  12. MERCAPTOPURINE [Suspect]
     Active Substance: MERCAPTOPURINE
     Dosage: UNK, QD
     Route: 048
  13. MERCAPTOPURINE [Suspect]
     Active Substance: MERCAPTOPURINE
  14. MERCAPTOPURINE [Suspect]
     Active Substance: MERCAPTOPURINE
  15. MERCAPTOPURINE [Suspect]
     Active Substance: MERCAPTOPURINE
     Route: 048
  16. MERCAPTOPURINE [Suspect]
     Active Substance: MERCAPTOPURINE
     Route: 048
  17. METHOTREXATE [Suspect]
     Active Substance: METHOTREXATE
     Indication: Non-Hodgkin^s lymphoma
  18. METHOTREXATE [Suspect]
     Active Substance: METHOTREXATE
  19. METHOTREXATE [Suspect]
     Active Substance: METHOTREXATE
     Route: 048
  20. METHOTREXATE [Suspect]
     Active Substance: METHOTREXATE
     Route: 048
  21. METHOTREXATE [Suspect]
     Active Substance: METHOTREXATE
  22. METHOTREXATE [Suspect]
     Active Substance: METHOTREXATE
  23. METHOTREXATE [Suspect]
     Active Substance: METHOTREXATE
     Route: 048
  24. METHOTREXATE [Suspect]
     Active Substance: METHOTREXATE
     Route: 048
  25. VINCRISTINE [Suspect]
     Active Substance: VINCRISTINE
     Indication: Non-Hodgkin^s lymphoma
  26. VINCRISTINE [Suspect]
     Active Substance: VINCRISTINE
  27. VINCRISTINE [Suspect]
     Active Substance: VINCRISTINE
     Route: 042
  28. VINCRISTINE [Suspect]
     Active Substance: VINCRISTINE
     Route: 042
  29. VINCRISTINE [Suspect]
     Active Substance: VINCRISTINE
  30. VINCRISTINE [Suspect]
     Active Substance: VINCRISTINE
  31. VINCRISTINE [Suspect]
     Active Substance: VINCRISTINE
     Route: 042
  32. VINCRISTINE [Suspect]
     Active Substance: VINCRISTINE
     Route: 042
  33. GANCICLOVIR [Suspect]
     Active Substance: GANCICLOVIR
     Indication: Cytomegalovirus viraemia
     Dosage: 5 MILLIGRAM/KILOGRAM, BID (5?MG/KG EVERY 12?HOURS)
  34. GANCICLOVIR [Suspect]
     Active Substance: GANCICLOVIR
     Dosage: 5 MILLIGRAM/KILOGRAM, BID (5?MG/KG EVERY 12?HOURS)
  35. GANCICLOVIR [Suspect]
     Active Substance: GANCICLOVIR
     Dosage: 5 MILLIGRAM/KILOGRAM, BID (5?MG/KG EVERY 12?HOURS)
     Route: 042
  36. GANCICLOVIR [Suspect]
     Active Substance: GANCICLOVIR
     Dosage: 5 MILLIGRAM/KILOGRAM, BID (5?MG/KG EVERY 12?HOURS)
     Route: 042
  37. GANCICLOVIR [Suspect]
     Active Substance: GANCICLOVIR
     Dosage: 8 MG/KG/DOSE EVERY 12?HOURS (BID)
  38. GANCICLOVIR [Suspect]
     Active Substance: GANCICLOVIR
     Dosage: 8 MG/KG/DOSE EVERY 12?HOURS (BID)
  39. GANCICLOVIR [Suspect]
     Active Substance: GANCICLOVIR
     Dosage: 8 MG/KG/DOSE EVERY 12?HOURS (BID)
     Route: 042
  40. GANCICLOVIR [Suspect]
     Active Substance: GANCICLOVIR
     Dosage: 8 MG/KG/DOSE EVERY 12?HOURS (BID)
     Route: 042
  41. HUMAN CYTOMEGALOVIRUS IMMUNE GLOBULIN [Concomitant]
     Active Substance: HUMAN CYTOMEGALOVIRUS IMMUNE GLOBULIN
     Indication: Cytomegalovirus viraemia
     Dosage: UNK, QW, INFUSION
  42. HUMAN CYTOMEGALOVIRUS IMMUNE GLOBULIN [Concomitant]
     Active Substance: HUMAN CYTOMEGALOVIRUS IMMUNE GLOBULIN
     Dosage: UNK, QW, INFUSION
     Route: 065
  43. HUMAN CYTOMEGALOVIRUS IMMUNE GLOBULIN [Concomitant]
     Active Substance: HUMAN CYTOMEGALOVIRUS IMMUNE GLOBULIN
     Dosage: UNK, QW, INFUSION
     Route: 065
  44. HUMAN CYTOMEGALOVIRUS IMMUNE GLOBULIN [Concomitant]
     Active Substance: HUMAN CYTOMEGALOVIRUS IMMUNE GLOBULIN
     Dosage: UNK, QW, INFUSION
  45. CEFEPIME [Concomitant]
     Active Substance: CEFEPIME HYDROCHLORIDE
     Indication: Evidence based treatment
  46. CEFEPIME [Concomitant]
     Active Substance: CEFEPIME HYDROCHLORIDE
     Route: 065
  47. CEFEPIME [Concomitant]
     Active Substance: CEFEPIME HYDROCHLORIDE
     Route: 065
  48. CEFEPIME [Concomitant]
     Active Substance: CEFEPIME HYDROCHLORIDE
  49. CASPOFUNGIN [Concomitant]
     Active Substance: CASPOFUNGIN
     Indication: Evidence based treatment
  50. CASPOFUNGIN [Concomitant]
     Active Substance: CASPOFUNGIN
     Route: 065
  51. CASPOFUNGIN [Concomitant]
     Active Substance: CASPOFUNGIN
     Route: 065
  52. CASPOFUNGIN [Concomitant]
     Active Substance: CASPOFUNGIN
  53. VALGANCICLOVIR [Concomitant]
     Active Substance: VALGANCICLOVIR
     Indication: Cytomegalovirus viraemia
     Dosage: 750 MILLIGRAM, BID (FOR 2 DAYS)
  54. VALGANCICLOVIR [Concomitant]
     Active Substance: VALGANCICLOVIR
     Dosage: 750 MILLIGRAM, BID (FOR 2 DAYS)
  55. VALGANCICLOVIR [Concomitant]
     Active Substance: VALGANCICLOVIR
     Dosage: 750 MILLIGRAM, BID (FOR 2 DAYS)
     Route: 048
  56. VALGANCICLOVIR [Concomitant]
     Active Substance: VALGANCICLOVIR
     Dosage: 750 MILLIGRAM, BID (FOR 2 DAYS)
     Route: 048
  57. VALGANCICLOVIR [Concomitant]
     Active Substance: VALGANCICLOVIR
     Dosage: 225 MILLIGRAM, BID
  58. VALGANCICLOVIR [Concomitant]
     Active Substance: VALGANCICLOVIR
     Dosage: 225 MILLIGRAM, BID
  59. VALGANCICLOVIR [Concomitant]
     Active Substance: VALGANCICLOVIR
     Dosage: 225 MILLIGRAM, BID
     Route: 048
  60. VALGANCICLOVIR [Concomitant]
     Active Substance: VALGANCICLOVIR
     Dosage: 225 MILLIGRAM, BID
     Route: 048
  61. VALGANCICLOVIR [Concomitant]
     Active Substance: VALGANCICLOVIR
     Dosage: 500 MILLIGRAM, BID
  62. VALGANCICLOVIR [Concomitant]
     Active Substance: VALGANCICLOVIR
     Dosage: 500 MILLIGRAM, BID
     Route: 065
  63. VALGANCICLOVIR [Concomitant]
     Active Substance: VALGANCICLOVIR
     Dosage: 500 MILLIGRAM, BID
  64. VALGANCICLOVIR [Concomitant]
     Active Substance: VALGANCICLOVIR
     Dosage: 500 MILLIGRAM, BID
     Route: 065

REACTIONS (1)
  - Myelosuppression [Recovering/Resolving]
